FAERS Safety Report 10411921 (Version 2)
Quarter: 2014Q3

REPORT INFORMATION
  Report Type: Spontaneous
  Country: US (occurrence: US)
  Receive Date: 20140827
  Receipt Date: 20140905
  Transmission Date: 20150326
  Serious: No
  Sender: FDA-Public Use
  Company Number: US-009507513-1408USA011014

PATIENT
  Sex: Male

DRUGS (1)
  1. NITRO-DUR [Suspect]
     Active Substance: NITROGLYCERIN
     Dosage: UNK
     Route: 062

REACTIONS (5)
  - Rash [Unknown]
  - Incontinence [Unknown]
  - Incorrect dose administered [Unknown]
  - Headache [Unknown]
  - Product quality issue [Unknown]
